FAERS Safety Report 4287817-1 (Version None)
Quarter: 2004Q1

REPORT INFORMATION
  Report Type: 
  Country: None (occurrence: None)
  Receive Date: 20040205
  Receipt Date: 20040109
  Transmission Date: 20041129
  Serious: Yes (Hospitalization)
  Sender: FDA-Public Use
  Company Number: A02200400111

PATIENT
  Age: 50 Year
  Sex: Female

DRUGS (2)
  1. PLAQUENIL [Suspect]
     Indication: DERMATOMYOSITIS
     Dosage: 400 MG QD,  ORAL (TIME TO ONSET: 5 DAYS)
     Route: 048
     Dates: start: 20030922, end: 20031003
  2. SIBELIUM (FLUNARIZINE DIHYDROCHLORIDE) [Suspect]
     Indication: VERTIGO
     Dosage: NI UNK; ORAL (TIME TO ONSET: 5 DAYS)
     Route: 048
     Dates: start: 20030922, end: 20031002

REACTIONS (5)
  - DERMATITIS [None]
  - ECZEMA [None]
  - EOSINOPHILIA [None]
  - RASH VESICULAR [None]
  - TOXIC SKIN ERUPTION [None]
